FAERS Safety Report 19000352 (Version 2)
Quarter: 2021Q1

REPORT INFORMATION
  Report Type: Spontaneous
  Country: AR (occurrence: AR)
  Receive Date: 20210312
  Receipt Date: 20210323
  Transmission Date: 20210420
  Serious: Yes (Life-Threatening, Hospitalization, Other)
  Sender: FDA-Public Use
  Company Number: AR-ACCORD-219397

PATIENT
  Age: 48 Year
  Sex: Male

DRUGS (9)
  1. FOSAMPRENAVIR/FOSAMPRENAVIR CALCIUM [Interacting]
     Active Substance: FOSAMPRENAVIR CALCIUM
     Indication: ANTIRETROVIRAL THERAPY
     Dosage: RITONAVIR BOOSTED?FOSAMPRENAVIR
     Route: 048
     Dates: start: 200812, end: 20181213
  2. ASPIRIN. [Concomitant]
     Active Substance: ASPIRIN
     Indication: ACUTE MYOCARDIAL INFARCTION
     Dates: start: 20181203
  3. EPLERENONE. [Suspect]
     Active Substance: EPLERENONE
     Indication: LEFT VENTRICULAR DYSFUNCTION
     Route: 048
     Dates: start: 20181203, end: 20181213
  4. EMTRICITABINE/TENOFOVIR [Interacting]
     Active Substance: EMTRICITABINE\TENOFOVIR
     Indication: ANTIRETROVIRAL THERAPY
     Dates: start: 200812, end: 20181213
  5. RITONAVIR. [Interacting]
     Active Substance: RITONAVIR
     Indication: HIV INFECTION
     Route: 048
     Dates: start: 200812, end: 20181213
  6. LOSARTAN. [Concomitant]
     Active Substance: LOSARTAN
     Indication: ACUTE MYOCARDIAL INFARCTION
     Dates: start: 20181203
  7. CARVEDILOL/CARVEDILOL HYDROCHLODRIDE [Concomitant]
     Active Substance: CARVEDILOL HYDROCHLORIDE
     Indication: ACUTE MYOCARDIAL INFARCTION
     Dates: start: 20181203
  8. CLOPIDOGREL [Concomitant]
     Active Substance: CLOPIDOGREL BISULFATE
     Indication: ACUTE MYOCARDIAL INFARCTION
     Dates: start: 20181203
  9. ATORVASTATIN [Concomitant]
     Active Substance: ATORVASTATIN
     Indication: ACUTE MYOCARDIAL INFARCTION
     Dates: start: 20181203

REACTIONS (5)
  - Hyponatraemia [Unknown]
  - Drug level increased [Recovered/Resolved]
  - Hyperkalaemia [Recovered/Resolved]
  - Drug interaction [Unknown]
  - Drug clearance decreased [Recovered/Resolved]

NARRATIVE: CASE EVENT DATE: 20181210
